FAERS Safety Report 7067999-9 (Version None)
Quarter: 2010Q4

REPORT INFORMATION
  Report Type: 
  Country: None (occurrence: None)
  Receive Date: 20101027
  Receipt Date: 20101027
  Transmission Date: 20110411
  Serious: Yes (Hospitalization)
  Sender: FDA-Public Use
  Company Number: None

PATIENT
  Age: 5 Month
  Sex: Female
  Weight: 5.4432 kg

DRUGS (1)
  1. HYLANDS TEETHING TABLETS 2 TABLETS EVERY 3-4 HOURS AS NEED STANDARD HO [Suspect]
     Indication: TEETHING
     Dosage: 2 TABLETS ONCE PO (ONE TIME ONLY)
     Route: 048
     Dates: start: 20080530, end: 20080530

REACTIONS (5)
  - COMA [None]
  - DYSPNOEA [None]
  - EYE ROLLING [None]
  - HYPOTONIA [None]
  - UNRESPONSIVE TO STIMULI [None]
